FAERS Safety Report 9580488 (Version 2)
Quarter: 2014Q3

REPORT INFORMATION
  Report Type: Spontaneous
  Country: US (occurrence: None)
  Receive Date: 20130916
  Receipt Date: 20140915
  Transmission Date: 20150326
  Serious: Yes (Other)
  Sender: FDA-Public Use
  Company Number: JPI-P-030487

PATIENT
  Age: 36 Year
  Sex: Female
  Weight: 79.38 kg

DRUGS (9)
  1. LUNESTA [Concomitant]
     Active Substance: ESZOPICLONE
  2. VALIUM [Concomitant]
     Active Substance: DIAZEPAM
  3. ROBAXIN (METHOCARBOMOL) [Concomitant]
  4. PERCOCET (OXYCODONE/ACETAMINOPHEN) [Concomitant]
  5. WELLBUTRIN (BUPROPION HCL) [Concomitant]
  6. XYREM [Suspect]
     Active Substance: SODIUM OXYBATE
     Indication: CATAPLEXY
     Dosage: 4.5 GM (2.25 GM, 2 IN1 D)
     Route: 048
     Dates: start: 20130222, end: 2013
  7. TRAZODONE [Concomitant]
     Active Substance: TRAZODONE HYDROCHLORIDE
  8. DEXEDRINE [Concomitant]
     Active Substance: DEXTROAMPHETAMINE SULFATE
  9. PRILOSEC (OMEPERZOLE) [Concomitant]

REACTIONS (10)
  - Mydriasis [None]
  - Visual impairment [None]
  - Headache [None]
  - Depression [None]
  - Condition aggravated [None]
  - Gastrooesophageal reflux disease [None]
  - Insomnia [None]
  - Somnolence [None]
  - Tremor [None]
  - Nausea [None]

NARRATIVE: CASE EVENT DATE: 2013
